FAERS Safety Report 8187232-4 (Version None)
Quarter: 2012Q1

REPORT INFORMATION
  Report Type: 
  Country: None (occurrence: None)
  Receive Date: 20120302
  Receipt Date: 20120221
  Transmission Date: 20120608
  Serious: Yes (Disabling, Other)
  Sender: FDA-Public Use
  Company Number: 2010MA003478

PATIENT
  Sex: Female

DRUGS (38)
  1. ADDERALL 5 [Concomitant]
  2. AMLODIPINE [Concomitant]
  3. CLINDAMYCIN [Concomitant]
  4. DETROL LA [Concomitant]
  5. HYDROCODONE BITARTRATE AND ACETAMINOPHEN [Concomitant]
  6. METFORMIN HYDROCHLORIDE [Concomitant]
  7. METOPROLOL SUCCINATE [Concomitant]
  8. ROPINIROLE [Concomitant]
  9. COLCHICINE [Concomitant]
  10. LEVAQUIN [Concomitant]
  11. VISTARIL [Concomitant]
  12. ZOCOR [Concomitant]
  13. BUPROPION HYDROCHLORIDE [Concomitant]
  14. LAMICTAL [Concomitant]
  15. VITAMIN E [Concomitant]
  16. XANAX [Concomitant]
  17. ALLOPURINOL [Concomitant]
  18. BUSPAR [Concomitant]
  19. CLONAZEPAM [Concomitant]
  20. LIDODERM [Concomitant]
  21. NORVASC [Concomitant]
  22. KLONOPIN [Concomitant]
  23. OXYCONTIN [Concomitant]
  24. CYMBALTA [Concomitant]
  25. AMPHETAMINE AND DEXTROAMPHETAMINE SALTS [Concomitant]
  26. GABAPENTIN [Concomitant]
  27. SIMVASTATIN [Concomitant]
  28. TEMAZEPAM [Concomitant]
  29. ATIVAN [Concomitant]
  30. HYDROCHLOROTHIAZIDE [Concomitant]
  31. LAMOTRIGINE [Concomitant]
  32. OMEPRAZOLE [Concomitant]
  33. SKELAXIN [Concomitant]
  34. WELLBUTRIN [Concomitant]
  35. METOCLOPRAMIDE HYDROCHLORIDE [Suspect]
     Indication: NAUSEA
     Dosage: 10 MG;BID;PO
     Route: 048
     Dates: start: 20081203, end: 20100401
  36. METOCLOPRAMIDE HYDROCHLORIDE [Suspect]
     Indication: GASTROINTESTINAL PAIN
     Dosage: 10 MG;BID;PO
     Route: 048
     Dates: start: 20081203, end: 20100401
  37. JANUVIA [Concomitant]
  38. PANTOPRAZOLE [Concomitant]

REACTIONS (13)
  - DYSKINESIA [None]
  - DEPRESSION [None]
  - DYSARTHRIA [None]
  - ANXIETY [None]
  - ATTENTION DEFICIT/HYPERACTIVITY DISORDER [None]
  - TOOTH LOSS [None]
  - GAIT DISTURBANCE [None]
  - TRISMUS [None]
  - TARDIVE DYSKINESIA [None]
  - BRUXISM [None]
  - PROTRUSION TONGUE [None]
  - SPEECH DISORDER [None]
  - ARTHRITIS [None]
